FAERS Safety Report 8575049-8 (Version None)
Quarter: 2012Q3

REPORT INFORMATION
  Report Type: 
  Country: None (occurrence: None)
  Receive Date: 20120807
  Receipt Date: 20120723
  Transmission Date: 20120928
  Serious: Yes (Other)
  Sender: FDA-Public Use
  Company Number: NL-MYLANLABS-2012S1016084

PATIENT
  Age: 30 Year
  Sex: Female

DRUGS (3)
  1. PREDNISOLONE [Suspect]
     Indication: COLITIS ULCERATIVE
     Route: 065
  2. INFLIXIMAB [Suspect]
     Indication: COLITIS ULCERATIVE
     Route: 050
  3. AZATHIOPRINE SODIUM [Suspect]
     Indication: COLITIS ULCERATIVE
     Route: 065

REACTIONS (7)
  - AUTOIMMUNE HEPATITIS [None]
  - NORMAL NEWBORN [None]
  - PREMATURE DELIVERY [None]
  - CONDITION AGGRAVATED [None]
  - MATERNAL EXPOSURE DURING PREGNANCY [None]
  - COLITIS [None]
  - PREGNANCY [None]
